FAERS Safety Report 14268309 (Version 1)
Quarter: 2017Q4

REPORT INFORMATION
  Report Type: Spontaneous
  Country: US (occurrence: US)
  Receive Date: 20171211
  Receipt Date: 20171211
  Transmission Date: 20180321
  Serious: Yes (Disabling, Other)
  Sender: FDA-Public Use
  Company Number: None

PATIENT
  Sex: Female
  Weight: 56.25 kg

DRUGS (6)
  1. FLUOCINONIDE. [Concomitant]
     Active Substance: FLUOCINONIDE
  2. CLONIDINE (CATAPRES) [Concomitant]
  3. ATENOLOL 100MG [Suspect]
     Active Substance: ATENOLOL
     Indication: BLOOD PRESSURE MEASUREMENT
     Dosage: ?          QUANTITY:1 TABLET(S);?
     Route: 048
     Dates: start: 20170409, end: 20170611
  4. CLOBETASOL [Concomitant]
     Active Substance: CLOBETASOL
  5. CENTRUM SILVER [Concomitant]
     Active Substance: MINERALS\VITAMINS
  6. CALCIUM WITH VITAMIN D3 [Concomitant]
     Active Substance: CALCIUM CARBONATE\CHOLECALCIFEROL

REACTIONS (6)
  - Vaginal infection [None]
  - Skin burning sensation [None]
  - Pruritus [None]
  - Lichen planus [None]
  - Alopecia [None]
  - Oral lichen planus [None]

NARRATIVE: CASE EVENT DATE: 20170611
